FAERS Safety Report 19748346 (Version 1)
Quarter: 2021Q3

REPORT INFORMATION
  Report Type: Spontaneous
  Country: US (occurrence: US)
  Receive Date: 20210825
  Receipt Date: 20210825
  Transmission Date: 20211014
  Serious: Yes (Death)
  Sender: FDA-Public Use
  Company Number: None

PATIENT
  Age: 73 Year
  Sex: Male
  Weight: 108 kg

DRUGS (11)
  1. MIDAZOLAM. [Concomitant]
     Active Substance: MIDAZOLAM
     Dates: start: 20210815, end: 20210824
  2. CEFEPIME [Concomitant]
     Active Substance: CEFEPIME HYDROCHLORIDE
     Dates: start: 20210819, end: 20210824
  3. NOREPINEPHRINE. [Concomitant]
     Active Substance: NOREPINEPHRINE
     Dates: start: 20210813, end: 20210824
  4. FENTANYL. [Concomitant]
     Active Substance: FENTANYL
     Dates: start: 20210813, end: 20210824
  5. BARICITINIB USE FOR COVID?19 UNDER EMERGENCY USE AUTHORIZATION (EUA) [Suspect]
     Active Substance: BARICITINIB
     Indication: COVID-19
     Route: 048
     Dates: start: 20210818, end: 20210821
  6. DEXAMETHASONE. [Concomitant]
     Active Substance: DEXAMETHASONE
     Dates: start: 20210813, end: 20210824
  7. LOVENOX [Concomitant]
     Active Substance: ENOXAPARIN SODIUM
     Dates: start: 20210812, end: 20210824
  8. BARICITINIB USE FOR COVID?19 UNDER EMERGENCY USE AUTHORIZATION (EUA) [Suspect]
     Active Substance: BARICITINIB
     Indication: COVID-19
     Route: 048
     Dates: start: 20210812, end: 20210818
  9. CISATRICURIUM [Concomitant]
     Dates: start: 20210815, end: 20210824
  10. PROPOFOL. [Concomitant]
     Active Substance: PROPOFOL
     Dates: start: 20210813, end: 20210824
  11. VASOPRESSIN. [Concomitant]
     Active Substance: VASOPRESSIN
     Dates: start: 20210813, end: 20210824

REACTIONS (2)
  - Acute kidney injury [None]
  - Therapy cessation [None]

NARRATIVE: CASE EVENT DATE: 20210824
